FAERS Safety Report 10751901 (Version 4)
Quarter: 2016Q4

REPORT INFORMATION
  Report Type: Spontaneous
  Country: US (occurrence: US)
  Receive Date: 20150130
  Receipt Date: 20161117
  Transmission Date: 20170206
  Serious: Yes (Hospitalization, Disabling, Other)
  Sender: FDA-Public Use
  Company Number: US-009507513-1204USA03767

PATIENT
  Sex: Male

DRUGS (3)
  1. PROPECIA [Suspect]
     Active Substance: FINASTERIDE
     Indication: ALOPECIA
     Dosage: 1 MG, QD
     Route: 048
     Dates: start: 2005, end: 201008
  2. DEXEDRINE [Concomitant]
     Active Substance: DEXTROAMPHETAMINE SULFATE
     Indication: ATTENTION DEFICIT/HYPERACTIVITY DISORDER
     Dosage: UNK
     Dates: start: 2003, end: 2008
  3. ADDERALL [Concomitant]
     Active Substance: AMPHETAMINE ASPARTATE\AMPHETAMINE SULFATE\DEXTROAMPHETAMINE SACCHARATE\DEXTROAMPHETAMINE SULFATE
     Indication: ATTENTION DEFICIT/HYPERACTIVITY DISORDER
     Dosage: UNK
     Dates: start: 200312, end: 200808

REACTIONS (44)
  - Arthralgia [Unknown]
  - Libido decreased [Not Recovered/Not Resolved]
  - Sleep disorder [Unknown]
  - Insomnia [Unknown]
  - Post concussion syndrome [Unknown]
  - Anxiety [Not Recovered/Not Resolved]
  - Ejaculation failure [Not Recovered/Not Resolved]
  - Erectile dysfunction [Not Recovered/Not Resolved]
  - Sexual dysfunction [Not Recovered/Not Resolved]
  - Bipolar disorder [Unknown]
  - Nausea [Unknown]
  - Liver function test increased [Unknown]
  - Headache [Unknown]
  - Speech disorder [Unknown]
  - Time perception altered [Unknown]
  - Type 2 diabetes mellitus [Unknown]
  - Craniocerebral injury [Unknown]
  - Amnesia [Unknown]
  - Back pain [Unknown]
  - Dizziness [Unknown]
  - Cognitive disorder [Not Recovered/Not Resolved]
  - Fall [Unknown]
  - Panic attack [Unknown]
  - Fall [Unknown]
  - Abdominal pain [Unknown]
  - Dehydration [Unknown]
  - Neck pain [Unknown]
  - Arthralgia [Unknown]
  - Eyelid injury [Unknown]
  - Gastritis [Unknown]
  - Rhabdomyolysis [Unknown]
  - Feeling abnormal [Unknown]
  - Attention deficit/hyperactivity disorder [Not Recovered/Not Resolved]
  - Musculoskeletal pain [Unknown]
  - Vision blurred [Unknown]
  - Ejaculation disorder [Not Recovered/Not Resolved]
  - Confusional state [Not Recovered/Not Resolved]
  - Stress [Unknown]
  - Migraine [Unknown]
  - Depression [Not Recovered/Not Resolved]
  - Fatigue [Unknown]
  - Impulse-control disorder [Not Recovered/Not Resolved]
  - Pain [Unknown]
  - Confusional state [Unknown]

NARRATIVE: CASE EVENT DATE: 2006
